FAERS Safety Report 7351785-6 (Version None)
Quarter: 2011Q1

REPORT INFORMATION
  Report Type: 
  Country: None (occurrence: None)
  Receive Date: 20110315
  Receipt Date: 20100927
  Transmission Date: 20110831
  Serious: Yes (Other)
  Sender: FDA-Public Use
  Company Number: US-BAYER-200944110NA

PATIENT
  Sex: Female

DRUGS (5)
  1. ADVIL LIQUI-GELS [Concomitant]
  2. LUTERA-28 [Concomitant]
     Dosage: UNK
     Dates: start: 20090515, end: 20090829
  3. YAZ [Suspect]
     Dosage: UNK UNK, QD
     Route: 048
     Dates: start: 20080423, end: 20090601
  4. ASCORBIC ACID [Concomitant]
  5. YASMIN [Suspect]
     Route: 048
     Dates: start: 20080501, end: 20090601

REACTIONS (2)
  - CHOLECYSTITIS CHRONIC [None]
  - BILIARY DYSKINESIA [None]
